FAERS Safety Report 5243246-5 (Version None)
Quarter: 2007Q1

REPORT INFORMATION
  Report Type: 
  Country: None (occurrence: None)
  Receive Date: 20070221
  Receipt Date: 20070212
  Transmission Date: 20070707
  Serious: Yes (Hospitalization)
  Sender: FDA-Public Use
  Company Number: FR-PFIZER INC-2007006536

PATIENT
  Age: 7 Year
  Sex: Male
  Weight: 26 kg

DRUGS (2)
  1. ZITHROMAX [Suspect]
     Dosage: TEXT:1 DF
     Route: 048
     Dates: start: 20051115, end: 20060315
  2. TOBI [Suspect]
     Route: 055
     Dates: start: 20051115, end: 20060315

REACTIONS (2)
  - NYSTAGMUS [None]
  - VERTIGO [None]
